FAERS Safety Report 10027258 (Version 1)
Quarter: 2014Q1

REPORT INFORMATION
  Report Type: Spontaneous
  Country: US (occurrence: US)
  Receive Date: 20140321
  Receipt Date: 20140321
  Transmission Date: 20141002
  Serious: Yes (Other)
  Sender: FDA-Public Use
  Company Number: US-JNJFOC-20140310167

PATIENT
  Age: 63 Year
  Sex: Male

DRUGS (1)
  1. XARELTO [Suspect]
     Indication: DEEP VEIN THROMBOSIS
     Route: 048
     Dates: start: 20140222

REACTIONS (2)
  - Glomerular filtration rate increased [Not Recovered/Not Resolved]
  - Drug prescribing error [Not Recovered/Not Resolved]
